FAERS Safety Report 10988504 (Version 2)
Quarter: 2015Q2

REPORT INFORMATION
  Report Type: Spontaneous
  Country: US (occurrence: US)
  Receive Date: 20150404
  Receipt Date: 20150525
  Transmission Date: 20150821
  Serious: No
  Sender: FDA-Public Use
  Company Number: US-JNJFOC-20130607354

PATIENT

DRUGS (6)
  1. 6-MERCAPTOPURINE [Concomitant]
     Active Substance: MERCAPTOPURINE
     Dosage: STABLE DOSE FOR 8 WEEKS BEFORE SCREENING
     Route: 065
  2. INFLIXIMAB, RECOMBINANT [Suspect]
     Active Substance: INFLIXIMAB
     Indication: CROHN^S DISEASE
     Route: 042
  3. ANTIBIOTICS [Concomitant]
     Active Substance: UNSPECIFIED INGREDIENT
     Dosage: STABLE DOSE FOR 4 WEEKS BEFORE SCREENING
     Route: 065
  4. METHOTREXATE [Concomitant]
     Active Substance: METHOTREXATE
     Dosage: STABLE DOSE FOR 8 WEEKS BEFORE SCREENING
     Route: 065
  5. MESALAMINE. [Concomitant]
     Active Substance: MESALAMINE
     Route: 065
  6. AZATHIOPRINE. [Concomitant]
     Active Substance: AZATHIOPRINE
     Dosage: STABLE DOSE FOR 8 WEEKS BEFORE SCREENING
     Route: 065

REACTIONS (4)
  - Infusion related reaction [Unknown]
  - Hypersensitivity [Unknown]
  - Drug specific antibody present [Unknown]
  - Drug ineffective [Unknown]
